FAERS Safety Report 17044493 (Version 1)
Quarter: 2019Q4

REPORT INFORMATION
  Report Type: Spontaneous
  Country: US (occurrence: US)
  Receive Date: 20191117
  Receipt Date: 20191117
  Transmission Date: 20200122
  Serious: No
  Sender: FDA-Public Use
  Company Number: None

PATIENT
  Age: 28 Year
  Sex: Female
  Weight: 69.3 kg

DRUGS (3)
  1. CELEXA [Suspect]
     Active Substance: CITALOPRAM HYDROBROMIDE
     Indication: DEPRESSION
     Dosage: ?          QUANTITY:1 TABLET(S);?
     Route: 048
     Dates: start: 20191015, end: 20191023
  2. PROGESTIN [Concomitant]
     Active Substance: PROGESTERONE
  3. TYLENOL [Concomitant]
     Active Substance: ACETAMINOPHEN

REACTIONS (14)
  - Thanatophobia [None]
  - Chest discomfort [None]
  - Agitation [None]
  - Hypervigilance [None]
  - Paranoia [None]
  - Suicidal ideation [None]
  - Feeling hot [None]
  - Hypopnoea [None]
  - Anxiety [None]
  - Hyperhidrosis [None]
  - Tremor [None]
  - Dizziness [None]
  - Panic attack [None]
  - Dyspnoea [None]

NARRATIVE: CASE EVENT DATE: 20191019
